FAERS Safety Report 7997951-8 (Version None)
Quarter: 2011Q4

REPORT INFORMATION
  Report Type: 
  Country: None (occurrence: None)
  Receive Date: 20111221
  Receipt Date: 20111219
  Transmission Date: 20120403
  Serious: Yes (Death, Hospitalization)
  Sender: FDA-Public Use
  Company Number: PHHY2011NL88769

PATIENT
  Sex: Male

DRUGS (10)
  1. ZOMETA [Suspect]
     Dosage: 4MG/5ML ONCE EVERY 21 DAYS
     Route: 042
     Dates: start: 20111024
  2. SIMBICORT TURBUHALER [Concomitant]
  3. ISOSORB [Concomitant]
  4. ZOMETA [Suspect]
     Indication: LUNG ADENOCARCINOMA METASTATIC
     Dosage: 4MG/5ML ONCE EVERY 21 DAYS
     Route: 042
     Dates: start: 20111004
  5. ACETYLCYSTEINE [Concomitant]
  6. PERINDOPRIL [Concomitant]
  7. CARBASALATE CALCIUM [Concomitant]
  8. ZOMETA [Suspect]
     Dosage: 4MG/5ML ONCE EVERY 21 DAYS
     Route: 042
     Dates: start: 20111124
  9. FUROSEMIDE [Concomitant]
  10. ADALAT [Concomitant]

REACTIONS (8)
  - BONE PAIN [None]
  - NEOPLASM PROGRESSION [None]
  - NEOPLASM MALIGNANT [None]
  - FATIGUE [None]
  - DYSPNOEA [None]
  - PYREXIA [None]
  - PNEUMONIA [None]
  - MALAISE [None]
